FAERS Safety Report 16566608 (Version 1)
Quarter: 2019Q3

REPORT INFORMATION
  Report Type: Spontaneous
  Country: AT (occurrence: AT)
  Receive Date: 20190712
  Receipt Date: 20190712
  Transmission Date: 20191004
  Serious: Yes (Other)
  Sender: FDA-Public Use
  Company Number: AT-PFIZER INC-2019292003

PATIENT
  Sex: Female

DRUGS (2)
  1. GEMCITABINE. [Suspect]
     Active Substance: GEMCITABINE
     Indication: SQUAMOUS CELL CARCINOMA OF LUNG
     Dosage: UNK
     Dates: start: 201901
  2. CARBOPLATIN. [Suspect]
     Active Substance: CARBOPLATIN
     Indication: SQUAMOUS CELL CARCINOMA OF LUNG
     Dosage: UNK
     Dates: start: 201901

REACTIONS (2)
  - Chronic obstructive pulmonary disease [Unknown]
  - Neoplasm progression [Unknown]
